FAERS Safety Report 5959370-5 (Version None)
Quarter: 2008Q4

REPORT INFORMATION
  Report Type: 
  Country: None (occurrence: None)
  Receive Date: 20081117
  Receipt Date: 20081106
  Transmission Date: 20090506
  Serious: Yes (Hospitalization)
  Sender: FDA-Public Use
  Company Number: 2008-04198

PATIENT
  Age: 64 Year
  Sex: Male

DRUGS (4)
  1. VELCADE [Suspect]
     Indication: MULTIPLE MYELOMA
     Dosage: 2.5 MG, INTRAVENOUS
     Route: 042
     Dates: start: 20080326
  2. DEXAMETHASONE 1.5MG TAB [Concomitant]
  3. LEVOFLOXACIN [Concomitant]
  4. AUGMENTIN '125' [Concomitant]

REACTIONS (6)
  - ANAEMIA [None]
  - ANOREXIA [None]
  - ASTHENIA [None]
  - BLOOD TEST ABNORMAL [None]
  - NAUSEA [None]
  - PYREXIA [None]
